FAERS Safety Report 10085098 (Version 6)
Quarter: 2016Q2

REPORT INFORMATION
  Report Type: Spontaneous
  Country: US (occurrence: US)
  Receive Date: 20140417
  Receipt Date: 20160527
  Transmission Date: 20160815
  Serious: Yes (Hospitalization, Disabling, Other)
  Sender: FDA-Public Use
  Company Number: US-009507513-1404USA006907

PATIENT
  Sex: Male
  Weight: 106.58 kg

DRUGS (9)
  1. PREDNISONE. [Concomitant]
     Active Substance: PREDNISONE
     Indication: ASTHMA
     Dosage: 40 MG, BID
     Route: 048
  2. ALBUTEROL SULFATE. [Concomitant]
     Active Substance: ALBUTEROL SULFATE
     Indication: ASTHMA
     Dosage: UNK, UNKNOWN
     Route: 055
  3. IPRATROPIUM BROMIDE. [Concomitant]
     Active Substance: IPRATROPIUM BROMIDE
     Indication: ASTHMA
     Dosage: UNK UNK, UNKNOWN
     Route: 065
  4. MONTELUKAST SODIUM. [Concomitant]
     Active Substance: MONTELUKAST SODIUM
     Indication: ASTHMA
     Dosage: UNK, UNKNOWN
     Route: 048
  5. XOLAIR [Concomitant]
     Active Substance: OMALIZUMAB
     Indication: ASTHMA
     Dosage: UNK, UNKNOWN
     Route: 065
  6. DALIRESP [Concomitant]
     Active Substance: ROFLUMILAST
     Indication: ASTHMA
     Dosage: UNK, UNKNOWN
     Route: 065
  7. DESLORATADINE. [Concomitant]
     Active Substance: DESLORATADINE
     Indication: ASTHMA
     Dosage: UNK, UNKNOWN
     Route: 048
  8. THEOPHYLLINE [Concomitant]
     Active Substance: THEOPHYLLINE ANHYDROUS
     Indication: ASTHMA
     Dosage: 300 MG, Q12H
     Route: 048
  9. PROPECIA [Suspect]
     Active Substance: FINASTERIDE
     Indication: ANDROGENETIC ALOPECIA
     Dosage: 1 MG, QD
     Route: 048
     Dates: start: 19980610, end: 2009

REACTIONS (73)
  - Intervertebral disc protrusion [Unknown]
  - Blood lactate dehydrogenase increased [Unknown]
  - Vision blurred [Unknown]
  - Gastrooesophageal reflux disease [Unknown]
  - Chronic obstructive pulmonary disease [Unknown]
  - Dry skin [Unknown]
  - Neck pain [Unknown]
  - White blood cell count increased [Unknown]
  - Sexual dysfunction [Not Recovered/Not Resolved]
  - Loss of libido [Unknown]
  - Neuropathy peripheral [Not Recovered/Not Resolved]
  - Cushingoid [Unknown]
  - Depression [Unknown]
  - Paraplegia [Unknown]
  - Primary hypogonadism [Not Recovered/Not Resolved]
  - Rheumatoid arthritis [Unknown]
  - Post inflammatory pigmentation change [Recovering/Resolving]
  - Urinary straining [Unknown]
  - Type 2 diabetes mellitus [Not Recovered/Not Resolved]
  - Hypoaesthesia [Unknown]
  - Varicocele [Unknown]
  - Microlithiasis [Unknown]
  - Penile discharge [Unknown]
  - Vitamin D deficiency [Unknown]
  - Muscular dystrophy [Unknown]
  - Dermatitis contact [Unknown]
  - Libido decreased [Unknown]
  - Blood creatine phosphokinase increased [Unknown]
  - Lower limb fracture [Unknown]
  - Urethral stenosis [Unknown]
  - Orchitis [Not Recovered/Not Resolved]
  - Amnesia [Unknown]
  - Hypoaesthesia [Not Recovered/Not Resolved]
  - Paraesthesia [Not Recovered/Not Resolved]
  - Road traffic accident [Unknown]
  - Breast enlargement [Unknown]
  - Depression [Not Recovered/Not Resolved]
  - Semen volume decreased [Unknown]
  - Treatment failure [Unknown]
  - Wheezing [Unknown]
  - Chest discomfort [Unknown]
  - Burning sensation [Not Recovered/Not Resolved]
  - Epididymitis [Recovering/Resolving]
  - Chemical burn of skin [Recovering/Resolving]
  - Testicular atrophy [Unknown]
  - Androgen deficiency [Unknown]
  - Cognitive disorder [Not Recovered/Not Resolved]
  - Epididymitis [Unknown]
  - Muscle spasms [Not Recovered/Not Resolved]
  - Sleep apnoea syndrome [Unknown]
  - Testicular pain [Not Recovered/Not Resolved]
  - Libido decreased [Unknown]
  - Asthma [Unknown]
  - Hidradenitis [Unknown]
  - Osteoporosis [Unknown]
  - Osteopenia [Unknown]
  - Myopathy [Not Recovered/Not Resolved]
  - Vitamin B12 deficiency [Unknown]
  - Fatigue [Not Recovered/Not Resolved]
  - Joint swelling [Unknown]
  - Dyspnoea [Unknown]
  - Xerosis [Unknown]
  - Hydrocele [Unknown]
  - Headache [Unknown]
  - Calcium deficiency [Unknown]
  - Ankle operation [Unknown]
  - Atrophy [Unknown]
  - Erectile dysfunction [Not Recovered/Not Resolved]
  - Epididymitis [Unknown]
  - Folliculitis [Recovering/Resolving]
  - Dermal cyst [Unknown]
  - Furuncle [Unknown]
  - Prostatitis [Not Recovered/Not Resolved]

NARRATIVE: CASE EVENT DATE: 1999
